FAERS Safety Report 4461099-X (Version None)
Quarter: 2004Q3

REPORT INFORMATION
  Report Type: 
  Country: None (occurrence: None)
  Receive Date: 20040923
  Receipt Date: 20040915
  Transmission Date: 20050211
  Serious: Yes (Hospitalization)
  Sender: FDA-Public Use
  Company Number: US-2004-027586

PATIENT
  Age: 30 Year
  Sex: Male
  Weight: 104.3 kg

DRUGS (5)
  1. BETASERON [Suspect]
     Indication: MULTIPLE SCLEROSIS
     Dosage: 8 MIU, EVERY 2D, SUBCUTANEOUS
     Route: 058
     Dates: start: 19990501
  2. IMURAN [Concomitant]
  3. LISINOPRIL [Concomitant]
  4. ASPIRIN [Concomitant]
  5. BACLOFEN [Concomitant]

REACTIONS (8)
  - ARTHRITIS BACTERIAL [None]
  - CONDITION AGGRAVATED [None]
  - INFLUENZA LIKE ILLNESS [None]
  - MEDICATION ERROR [None]
  - MULTIPLE SCLEROSIS [None]
  - NUCLEAR MAGNETIC RESONANCE IMAGING ABNORMAL [None]
  - PHARMACEUTICAL PRODUCT COMPLAINT [None]
  - STAPHYLOCOCCAL INFECTION [None]
